FAERS Safety Report 8812688 (Version 3)
Quarter: 2013Q1

REPORT INFORMATION
  Report Type: Report from Study
  Country: CA (occurrence: CA)
  Receive Date: 20120927
  Receipt Date: 20130110
  Transmission Date: 20140127
  Serious: Yes (Other)
  Sender: FDA-Public Use
  Company Number: CA-ABBOTT-12P-028-0985540-00

PATIENT
  Age: 57 Year
  Sex: Male
  Weight: 111 kg

DRUGS (6)
  1. HUMIRA [Suspect]
     Indication: PSORIASIS
     Route: 058
     Dates: start: 20090902, end: 20120919
  2. METOPROLOL [Concomitant]
     Indication: HYPERTENSION
     Dates: start: 2003
  3. RAMIPRIL [Concomitant]
     Indication: HYPERTENSION
     Dates: start: 2003
  4. HYDROCHLOROTHIAZIDE [Concomitant]
     Indication: HYPERTENSION
     Dates: start: 2003
  5. CRESTOR [Concomitant]
     Indication: HYPERLIPIDAEMIA
     Dates: start: 20100415
  6. FUSIDIC ACID [Concomitant]
     Indication: PSORIASIS
     Dates: start: 20110705

REACTIONS (1)
  - Colon cancer [Not Recovered/Not Resolved]
